FAERS Safety Report 19839548 (Version 1)
Quarter: 2021Q3

REPORT INFORMATION
  Report Type: Spontaneous
  Country: US (occurrence: US)
  Receive Date: 20210914
  Receipt Date: 20210914
  Transmission Date: 20211014
  Serious: Yes (Death)
  Sender: FDA-Public Use
  Company Number: None

PATIENT
  Age: 38 Year
  Sex: Male

DRUGS (1)
  1. TACROLIMUS (STRIDES) 1 MG STRIDES PHARMA [Suspect]
     Active Substance: TACROLIMUS
     Indication: RENAL TRANSPLANT
     Dosage: 2 CAPSULES IN THE MORINING AND 1 CAPSULE IN THE EVENING
     Route: 048
     Dates: start: 202007

REACTIONS (2)
  - Disease complication [None]
  - COVID-19 [None]

NARRATIVE: CASE EVENT DATE: 20210906
